FAERS Safety Report 20429812 (Version 3)
Quarter: 2022Q1

REPORT INFORMATION
  Report Type: Spontaneous
  Country: US (occurrence: US)
  Receive Date: 20220204
  Receipt Date: 20220311
  Transmission Date: 20220424
  Serious: Yes (Hospitalization, Other)
  Sender: FDA-Public Use
  Company Number: US-BIOVITRUM-2022US01587

PATIENT
  Age: 0 Year
  Sex: Male

DRUGS (7)
  1. SYNAGIS [Suspect]
     Active Substance: PALIVIZUMAB
     Indication: Chronic respiratory disease
     Route: 030
     Dates: start: 20210312
  2. SYNAGIS [Suspect]
     Active Substance: PALIVIZUMAB
     Indication: Supraventricular tachycardia
     Dates: start: 20210910
  3. SYNAGIS [Suspect]
     Active Substance: PALIVIZUMAB
     Indication: Premature baby
     Dates: start: 20210913
  4. SYNAGIS [Suspect]
     Active Substance: PALIVIZUMAB
     Dates: start: 20211217
  5. SYNAGIS [Suspect]
     Active Substance: PALIVIZUMAB
     Dates: start: 20220107
  6. SYNAGIS [Suspect]
     Active Substance: PALIVIZUMAB
     Dates: start: 20220207
  7. AMOXICILLIN [Suspect]
     Active Substance: AMOXICILLIN
     Indication: Otitis media

REACTIONS (14)
  - Hypoxia [Unknown]
  - Acute respiratory failure [Unknown]
  - COVID-19 [Unknown]
  - Otitis media [Unknown]
  - Dermatitis diaper [Unknown]
  - Urine output decreased [Unknown]
  - Diarrhoea [Unknown]
  - Depressed mood [Unknown]
  - Decreased appetite [Unknown]
  - Oxygen saturation decreased [Unknown]
  - Dehydration [Unknown]
  - Gastroenteritis [Unknown]
  - Diarrhoea [Unknown]
  - Vomiting [Unknown]

NARRATIVE: CASE EVENT DATE: 20220119
